FAERS Safety Report 7159989-2 (Version None)
Quarter: 2010Q4

REPORT INFORMATION
  Report Type: 
  Country: None (occurrence: None)
  Receive Date: 20101214
  Receipt Date: 20101207
  Transmission Date: 20110411
  Serious: Yes (Other)
  Sender: FDA-Public Use
  Company Number: DE-AMGEN GMBH-QUU436259

PATIENT

DRUGS (8)
  1. MIMPARA [Suspect]
     Indication: PRODUCT USED FOR UNKNOWN INDICATION
     Dosage: 30 MG, QD
     Dates: start: 20090826, end: 20090924
  2. MIMPARA [Suspect]
     Dosage: 60 MG, QD
     Dates: start: 20091216, end: 20091223
  3. MIMPARA [Suspect]
     Dosage: 30 MG, QD
     Dates: start: 20100803, end: 20100811
  4. RAMIPRIL [Concomitant]
     Indication: HYPERTENSION
     Dosage: 5 MG, UNK
     Dates: start: 20090615
  5. AMLODIPINE BESYLATE [Concomitant]
     Indication: HYPERTENSION
     Dosage: 5 MG, UNK
     Dates: start: 20090406, end: 20100613
  6. VITAMIN PREPARATION COMPOUND [Concomitant]
     Dosage: UNK
     Dates: start: 20090417
  7. FERRLECIT                          /00345601/ [Concomitant]
     Dosage: 40 MG, QWK
     Route: 042
     Dates: start: 20090413
  8. BINOCRIT [Concomitant]
     Dosage: 4000 IU, UNK
     Route: 058
     Dates: start: 20090424

REACTIONS (3)
  - ERECTILE DYSFUNCTION [None]
  - OEDEMA [None]
  - WEIGHT INCREASED [None]
